FAERS Safety Report 6114318-8 (Version None)
Quarter: 2009Q1

REPORT INFORMATION
  Report Type: 
  Country: None (occurrence: None)
  Receive Date: 20090312
  Receipt Date: 20090120
  Transmission Date: 20090719
  Serious: No
  Sender: FDA-Public Use
  Company Number: US-ABBOTT-09P-163-0498963-00

PATIENT
  Sex: Female
  Weight: 59.02 kg

DRUGS (3)
  1. DEPAKOTE [Suspect]
     Indication: BIPOLAR DISORDER
     Dates: start: 20080901, end: 20090106
  2. DEPAKOTE [Suspect]
     Dates: start: 20090106
  3. TEGRETOL [Suspect]
     Indication: BIPOLAR DISORDER
     Dates: start: 20080501

REACTIONS (3)
  - DRUG INEFFECTIVE [None]
  - HYPOMANIA [None]
  - NAUSEA [None]
